FAERS Safety Report 18794877 (Version 1)
Quarter: 2021Q1

REPORT INFORMATION
  Report Type: Spontaneous
  Country: US (occurrence: US)
  Receive Date: 20210127
  Receipt Date: 20210127
  Transmission Date: 20210419
  Serious: No
  Sender: FDA-Public Use
  Company Number: None

PATIENT
  Age: 84 Year
  Sex: Female
  Weight: 52.7 kg

DRUGS (10)
  1. IBRANCE [Suspect]
     Active Substance: PALBOCICLIB
     Indication: BREAST CANCER
     Dosage: OTHER FREQUENCY:DAILY FOR 21/28D;?
     Route: 048
     Dates: start: 20201029
  2. PEPCID AC [Concomitant]
     Active Substance: FAMOTIDINE
  3. VITAMIN B [Concomitant]
     Active Substance: VITAMIN B
  4. FASLODEX [Concomitant]
     Active Substance: FULVESTRANT
  5. PLAVIX [Concomitant]
     Active Substance: CLOPIDOGREL BISULFATE
  6. ASPIRIN. [Concomitant]
     Active Substance: ASPIRIN
  7. VITAMIN D [Concomitant]
     Active Substance: VITAMIN D NOS
  8. LIPITOR [Concomitant]
     Active Substance: ATORVASTATIN CALCIUM
  9. METOPROLOL. [Concomitant]
     Active Substance: METOPROLOL
  10. XGEVA [Concomitant]
     Active Substance: DENOSUMAB

REACTIONS (2)
  - Fatigue [None]
  - Alopecia [None]

NARRATIVE: CASE EVENT DATE: 20210127
